FAERS Safety Report 16501226 (Version 2)
Quarter: 2019Q3

REPORT INFORMATION
  Report Type: Spontaneous
  Country: HU (occurrence: HU)
  Receive Date: 20190701
  Receipt Date: 20190715
  Transmission Date: 20191004
  Serious: Yes (Life-Threatening, Hospitalization, Other)
  Sender: FDA-Public Use
  Company Number: HU-PFIZER INC-2019275278

PATIENT
  Age: 62 Year
  Sex: Male

DRUGS (10)
  1. TRAMADOL. [Suspect]
     Active Substance: TRAMADOL
     Dosage: 50 MG, 3X/DAY
     Route: 048
  2. ENOXAPARIN SODIUM. [Suspect]
     Active Substance: ENOXAPARIN SODIUM
     Dosage: 60 MG, 1X/DAY (6000 IU)
     Route: 058
  3. PANTOPRAZOLE [Suspect]
     Active Substance: PANTOPRAZOLE
     Dosage: 40 MG, 2X/DAY
     Route: 048
  4. NAPROXEN. [Suspect]
     Active Substance: NAPROXEN
     Dosage: 275 MG, 2X/DAY
     Route: 048
     Dates: end: 20180119
  5. THEOPHYLLINE [Suspect]
     Active Substance: THEOPHYLLINE ANHYDROUS
     Dosage: 150 MG, 2X/DAY
     Route: 048
     Dates: end: 20180119
  6. METOPROLOL. [Suspect]
     Active Substance: METOPROLOL
     Dosage: 100 MG, 1X/DAY
     Route: 048
     Dates: end: 20180130
  7. TIAPRID [Suspect]
     Active Substance: TIAPRIDE HYDROCHLORIDE
     Dosage: 100 MG, 2X/DAY
     Route: 048
     Dates: end: 20180119
  8. POTASSIUM CHLORIDE. [Suspect]
     Active Substance: POTASSIUM CHLORIDE
     Dosage: 1200 MG, 1X/DAY
     Route: 048
     Dates: end: 20180119
  9. FUROSEMIDE. [Suspect]
     Active Substance: FUROSEMIDE
     Dosage: 40 MG, 1X/DAY
     Route: 048
     Dates: end: 20180119
  10. RAMIPRIL. [Suspect]
     Active Substance: RAMIPRIL
     Dosage: 5 MG, 1X/DAY
     Route: 048
     Dates: end: 20180119

REACTIONS (3)
  - Sepsis syndrome [Recovered/Resolved]
  - Endocarditis [Recovered/Resolved]
  - Diarrhoea [Recovered/Resolved]

NARRATIVE: CASE EVENT DATE: 20180116
